FAERS Safety Report 9621644 (Version 2)
Quarter: 2013Q4

REPORT INFORMATION
  Report Type: Spontaneous
  Country: FR (occurrence: FR)
  Receive Date: 20131015
  Receipt Date: 20131024
  Transmission Date: 20140711
  Serious: Yes (Hospitalization, Other)
  Sender: FDA-Public Use
  Company Number: FR-PFIZER INC-2013288539

PATIENT
  Age: 86 Year
  Sex: Male

DRUGS (10)
  1. TAHOR [Suspect]
     Indication: HYPERCHOLESTEROLAEMIA
     Dosage: 80 MG, 1X/DAY
     Route: 048
  2. PLAVIX [Suspect]
     Dosage: 75 MG, 1X/DAY
     Route: 048
     Dates: start: 20130723, end: 20130813
  3. INEXIUM [Suspect]
     Dosage: 20 MG, 1X/DAY
     Route: 048
     Dates: start: 20130703, end: 20130730
  4. KARDEGIC [Concomitant]
     Dosage: 75 MG, UNK
  5. CARDENSIEL [Concomitant]
     Dosage: 1.25 MG, UNK
  6. BURINEX [Concomitant]
     Dosage: 5 MG, UNK
  7. ESIDREX [Concomitant]
     Dosage: UNK
  8. DIFFU K [Concomitant]
     Dosage: UNK
  9. CORDARONE [Concomitant]
     Dosage: UNK
  10. GANFORT [Concomitant]
     Dosage: UNK

REACTIONS (5)
  - Acute coronary syndrome [Unknown]
  - Rash maculo-papular [Recovered/Resolved]
  - Eosinophilia [Recovered/Resolved]
  - Renal failure [Unknown]
  - Erythema [Unknown]
